FAERS Safety Report 10330265 (Version 1)
Quarter: 2014Q3

REPORT INFORMATION
  Report Type: Report from Study
  Country: FR (occurrence: FR)
  Receive Date: 20140721
  Receipt Date: 20140721
  Transmission Date: 20150326
  Serious: Yes (Hospitalization)
  Sender: FDA-Public Use
  Company Number: FR-ROCHE-1437799

PATIENT
  Age: 54 Year
  Sex: Male

DRUGS (1)
  1. XOLAIR [Suspect]
     Active Substance: OMALIZUMAB
     Indication: ASTHMA
     Route: 065

REACTIONS (10)
  - Headache [Unknown]
  - Asthma [Unknown]
  - Restlessness [Unknown]
  - Agitation [Unknown]
  - Stress [Unknown]
  - Middle insomnia [Unknown]
  - Claustrophobia [Unknown]
  - Cyanosis [Unknown]
  - Mood swings [Unknown]
  - Dizziness [Unknown]
